FAERS Safety Report 24158008 (Version 1)
Quarter: 2024Q3

REPORT INFORMATION
  Report Type: Spontaneous
  Country: PL (occurrence: PL)
  Receive Date: 20240731
  Receipt Date: 20240731
  Transmission Date: 20241017
  Serious: Yes (Other)
  Sender: BAYER
  Company Number: None

PATIENT
  Age: 47 Year
  Sex: Male
  Weight: 80 kg

DRUGS (3)
  1. ULTRAVIST [Suspect]
     Active Substance: IOPROMIDE
     Indication: Laryngeal cancer
     Dosage: DOSE: 60; UNIT UNKNOWN
     Route: 042
     Dates: start: 20210602, end: 20210602
  2. HYDROCORTISONE [Concomitant]
     Active Substance: HYDROCORTISONE\HYDROCORTISONE ACETATE
     Route: 042
  3. SODIUM CHLORIDE [Concomitant]
     Active Substance: SODIUM CHLORIDE
     Route: 042

REACTIONS (4)
  - Heart rate abnormal [Unknown]
  - Presyncope [Unknown]
  - Blood pressure abnormal [Unknown]
  - Cold sweat [Unknown]

NARRATIVE: CASE EVENT DATE: 20210602
